FAERS Safety Report 7574899 (Version 3)
Quarter: 2013Q3

REPORT INFORMATION
  Report Type: Spontaneous
  Country: JP (occurrence: JP)
  Receive Date: 20100907
  Receipt Date: 20130708
  Transmission Date: 20140515
  Serious: Yes (Death, Other)
  Sender: FDA-Public Use
  Company Number: PHHY2010JP54857

PATIENT
  Age: 28 Year
  Sex: Female
  Weight: 45 kg

DRUGS (16)
  1. AFINITOR [Suspect]
     Indication: METASTATIC RENAL CELL CARCINOMA
     Dosage: 10 MG DAILY
     Route: 048
     Dates: start: 20100528, end: 20100607
  2. AFINITOR [Suspect]
     Dosage: 10 MG DAILY
     Route: 048
     Dates: start: 20100630, end: 20100730
  3. AFINITOR [Suspect]
     Dosage: 5 MG DAILY
     Route: 048
     Dates: start: 20100731, end: 20100809
  4. THYRADIN S [Concomitant]
     Dosage: 75 UG, UNK
     Route: 048
     Dates: start: 20100528
  5. THYRADIN S [Concomitant]
     Dosage: 100 UG, UNK
     Route: 048
     Dates: end: 20100809
  6. GASMOTIN [Concomitant]
     Dosage: 15 MG, UNK
     Route: 048
     Dates: start: 20100610, end: 20100801
  7. PARIET [Concomitant]
     Dosage: 10 MG, UNK
     Route: 048
     Dates: start: 20100623, end: 20100731
  8. PAXIL [Concomitant]
     Dosage: 20 MG, UNK
     Route: 048
     Dates: start: 20100629
  9. PAXIL [Concomitant]
     Dosage: 10 MG, UNK
     Route: 048
     Dates: end: 20100716
  10. SOLANAX [Concomitant]
     Dosage: 0.8 MG, UNK
     Route: 048
     Dates: start: 20100629, end: 20100809
  11. IODINATED (125 I) HUMAN SERUM ALBUMIN [Concomitant]
     Dosage: 100 ML, UNK
     Dates: start: 20100617, end: 20100621
  12. DECADRON [Concomitant]
     Indication: METASTATIC RENAL CELL CARCINOMA
     Dosage: 1.65 MG, UNK
     Route: 041
     Dates: start: 20100622, end: 20100715
  13. DECADRON [Concomitant]
     Dosage: 2 MG, UNK
     Route: 041
     Dates: end: 20100731
  14. DEPAS [Concomitant]
     Dosage: 1 MG, UNK
     Route: 048
     Dates: start: 20100721, end: 20100803
  15. REFLEX [Concomitant]
     Dosage: 30 MG, UNK
     Route: 048
     Dates: start: 20100709, end: 20100809
  16. MOBIC [Concomitant]
     Indication: METASTATIC RENAL CELL CARCINOMA
     Dosage: 10 MG, UNK
     Route: 048
     Dates: end: 20100809

REACTIONS (10)
  - Malignant neoplasm progression [Fatal]
  - Hypophagia [Fatal]
  - Hyperuricaemia [Not Recovered/Not Resolved]
  - Depression [Not Recovered/Not Resolved]
  - Pleural effusion [Recovering/Resolving]
  - Condition aggravated [Not Recovered/Not Resolved]
  - Cough [Not Recovered/Not Resolved]
  - Lymphocyte count decreased [Recovering/Resolving]
  - Oedema peripheral [Not Recovered/Not Resolved]
  - Anaemia [Recovering/Resolving]
